FAERS Safety Report 4709336-8 (Version None)
Quarter: 2005Q3

REPORT INFORMATION
  Report Type: 
  Country: None (occurrence: None)
  Receive Date: 20050708
  Receipt Date: 20050628
  Transmission Date: 20060218
  Serious: Yes (Hospitalization, Other)
  Sender: FDA-Public Use
  Company Number: US-JNJFOC-20050402917

PATIENT
  Sex: Female
  Weight: 83.92 kg

DRUGS (5)
  1. REMICADE [Suspect]
     Indication: CROHN'S DISEASE
     Route: 042
  2. 6-MP [Concomitant]
     Indication: CROHN'S DISEASE
     Dosage: 50/25 MG
  3. PENTASA [Concomitant]
     Indication: CROHN'S DISEASE
  4. CELEXA [Concomitant]
     Indication: DEPRESSION
  5. NEXIUM [Concomitant]

REACTIONS (4)
  - BACTERAEMIA [None]
  - INFLUENZA [None]
  - PHARYNGITIS STREPTOCOCCAL [None]
  - PSORIASIS [None]
